FAERS Safety Report 8641023 (Version 2)
Quarter: 2012Q4

REPORT INFORMATION
  Report Type: 
  Country: US (occurrence: US)
  Receive Date: 20120628
  Receipt Date: 20121105
  Transmission Date: 20130627
  Serious: Yes (Hospitalization)
  Sender: FDA-Public Use
  Company Number: US-BAYER-2012-062888

PATIENT
  Age: 53 Year
  Sex: Female
  Weight: 59 kg

DRUGS (10)
  1. YAZ [Suspect]
     Indication: OVARIAN CYST NOS
     Dosage: UNK
     Dates: start: 200605, end: 20061003
  2. YAZ [Suspect]
     Indication: URETHRAL INTRINSIC SPHINCTER DEFICIENCY
  3. NAPROXEN [Concomitant]
     Indication: HEADACHE
     Dosage: 250 mg, 2 pills TID as needed
     Route: 048
  4. NAPROXEN [Concomitant]
     Indication: PAIN
  5. CYCLOBENZAPRINE [Concomitant]
     Indication: LEG CRAMPS
     Dosage: 10 mg, TID as needed
     Route: 048
  6. FLEXERIL [Concomitant]
     Dosage: 10 mg, TID
     Route: 048
  7. NAPROSYN [Concomitant]
  8. DARVOCET [Concomitant]
  9. BACITRACIN [Concomitant]
  10. DARVOCET-N [Concomitant]

REACTIONS (10)
  - Deep vein thrombosis [None]
  - Cerebrovascular accident [None]
  - Thrombophlebitis superficial [None]
  - Atrioventricular block second degree [None]
  - Anaesthesia [None]
  - Hypoaesthesia [None]
  - Vision blurred [None]
  - Nausea [None]
  - Injury [None]
  - Pain [None]
